FAERS Safety Report 6332858-3 (Version None)
Quarter: 2009Q3

REPORT INFORMATION
  Report Type: 
  Country: None (occurrence: None)
  Receive Date: 20090828
  Receipt Date: 20090825
  Transmission Date: 20100115
  Serious: Yes (Hospitalization)
  Sender: FDA-Public Use
  Company Number: US-B.I. PHARMACEUTICALS,INC./RIDGEFIELD-2009-BP-10064BP

PATIENT
  Sex: Male

DRUGS (3)
  1. SPIRIVA [Suspect]
     Dosage: 18 MCG
     Route: 055
     Dates: start: 20070101
  2. LISINOPRIL [Concomitant]
     Indication: ATRIAL FIBRILLATION
  3. COREG [Concomitant]
     Indication: ATRIAL FIBRILLATION

REACTIONS (3)
  - CARDIAC FAILURE [None]
  - GASTROINTESTINAL ARTERIOVENOUS MALFORMATION [None]
  - LUNG INFECTION [None]
